FAERS Safety Report 4399873-0 (Version None)
Quarter: 2004Q3

REPORT INFORMATION
  Report Type: 
  Country: None (occurrence: None)
  Receive Date: 20040716
  Receipt Date: 20040702
  Transmission Date: 20050211
  Serious: Yes (Death, Hospitalization)
  Sender: FDA-Public Use
  Company Number: GB-JNJFOC-20040605724

PATIENT
  Age: 57 Year
  Sex: Female

DRUGS (5)
  1. REMICADE [Suspect]
     Indication: METASTATIC RENAL CELL CARCINOMA
     Dosage: 405 MG, 1 IN 8 WEEK, INTRAVENOUS
     Route: 042
     Dates: start: 20040524
  2. SEVREDOL (MORPHINE SULFATE) [Concomitant]
  3. ZOMORPH (ALL OTHER THERAPEUTIC PRODUCTS) [Concomitant]
  4. DICLOFENAC (DICLOFENAC) [Concomitant]
  5. BECLOMETHASONE (BECLOMETHASONE) [Concomitant]

REACTIONS (19)
  - ACUTE RESPIRATORY FAILURE [None]
  - ATELECTASIS [None]
  - ATRIOVENTRICULAR BLOCK [None]
  - CARDIAC FAILURE [None]
  - DEHYDRATION [None]
  - DIARRHOEA [None]
  - HAEMODYNAMIC INSTABILITY [None]
  - HEPATIC FAILURE [None]
  - HYPERLACTACIDAEMIA [None]
  - HYPOVOLAEMIA [None]
  - LUNG DISORDER [None]
  - MYOCARDITIS SEPTIC [None]
  - PNEUMONIA [None]
  - PROTHROMBIN TIME PROLONGED [None]
  - RENAL FAILURE [None]
  - RESPIRATORY TRACT INFECTION [None]
  - SEPTIC SHOCK [None]
  - VENTRICULAR HYPOKINESIA [None]
  - VOMITING [None]
